FAERS Safety Report 4380553-2 (Version None)
Quarter: 2004Q2

REPORT INFORMATION
  Report Type: 
  Country: None (occurrence: None)
  Receive Date: 20040618
  Receipt Date: 20040610
  Transmission Date: 20050107
  Serious: Yes (Other)
  Sender: FDA-Public Use
  Company Number: JP-MERCK-0406USA01519

PATIENT
  Age: 76 Year
  Sex: Female

DRUGS (6)
  1. AMLODIPINE BESYLATE [Concomitant]
     Route: 065
     Dates: start: 19970907, end: 20040610
  2. AROTINOLOL HYDROCHLORIDE [Concomitant]
     Route: 065
  3. BUFFERIN [Concomitant]
     Route: 065
     Dates: start: 19970907, end: 20040610
  4. DICLOFENAC SODIUM [Concomitant]
     Route: 065
     Dates: start: 20040306
  5. DICLOFENAC SODIUM [Concomitant]
     Route: 065
  6. COZAAR [Suspect]
     Route: 048
     Dates: start: 20011031, end: 20040422

REACTIONS (4)
  - ANOREXIA [None]
  - HEPATIC FUNCTION ABNORMAL [None]
  - PLEURAL EFFUSION [None]
  - WEIGHT DECREASED [None]
